FAERS Safety Report 11669030 (Version 3)
Quarter: 2015Q4

REPORT INFORMATION
  Report Type: Spontaneous
  Country: US (occurrence: US)
  Receive Date: 20151027
  Receipt Date: 20151209
  Transmission Date: 20160304
  Serious: Yes (Hospitalization, Disabling)
  Sender: FDA-Public Use
  Company Number: US-PFIZER INC-2015359831

PATIENT
  Age: 49 Year
  Sex: Female

DRUGS (1)
  1. EFFEXOR XR [Suspect]
     Active Substance: VENLAFAXINE HYDROCHLORIDE
     Indication: DEPRESSION
     Dosage: UNK
     Dates: start: 200308

REACTIONS (10)
  - Emotional disorder [Unknown]
  - Dizziness [Unknown]
  - Paraesthesia [Not Recovered/Not Resolved]
  - Crying [Unknown]
  - Abdominal discomfort [Unknown]
  - Depression [Unknown]
  - Nightmare [Not Recovered/Not Resolved]
  - Back disorder [Unknown]
  - Drug withdrawal syndrome [Not Recovered/Not Resolved]
  - Incoherent [Not Recovered/Not Resolved]

NARRATIVE: CASE EVENT DATE: 2008
